FAERS Safety Report 6282899-X (Version None)
Quarter: 2009Q3

REPORT INFORMATION
  Report Type: 
  Country: None (occurrence: None)
  Receive Date: 20090724
  Receipt Date: 20090715
  Transmission Date: 20100115
  Serious: Yes (Hospitalization)
  Sender: FDA-Public Use
  Company Number: FR-AMGEN-QUU355909

PATIENT
  Sex: Male

DRUGS (12)
  1. ARANESP [Suspect]
     Indication: DRUG USE FOR UNKNOWN INDICATION
     Route: 058
     Dates: start: 20090207
  2. BACTRIM [Concomitant]
     Route: 048
     Dates: start: 20090107
  3. MOPRAL [Concomitant]
     Dates: start: 20090206
  4. HUMALOG [Concomitant]
     Route: 058
     Dates: start: 20090207
  5. DEROXAT [Concomitant]
     Route: 048
     Dates: start: 20090116
  6. SOLU-MEDROL [Concomitant]
     Route: 042
     Dates: start: 20090206, end: 20090212
  7. MAGNE-B6 [Concomitant]
     Route: 048
     Dates: start: 20090128
  8. IMUREL [Concomitant]
     Dates: start: 20090105
  9. NEORAL [Concomitant]
     Dates: start: 20090105
  10. DIFFU K [Concomitant]
     Dates: start: 20090107
  11. UN-ALFA [Concomitant]
     Dates: start: 20090115
  12. SOLUPRED [Concomitant]

REACTIONS (1)
  - HEPATITIS [None]
